FAERS Safety Report 9553224 (Version 1)
Quarter: 2013Q3

REPORT INFORMATION
  Report Type: Spontaneous
  Country: GB (occurrence: GB)
  Receive Date: 20130925
  Receipt Date: 20130925
  Transmission Date: 20140515
  Serious: Yes (Disabling)
  Sender: FDA-Public Use
  Company Number: GB-009507513-1309GBR007880

PATIENT
  Age: 29 Year
  Sex: Female

DRUGS (4)
  1. NEXPLANON [Suspect]
     Indication: MENORRHAGIA
     Dosage: UNK
     Route: 058
     Dates: start: 20130212, end: 20130807
  2. LAMOTRIGINE [Concomitant]
  3. PREGABALIN [Concomitant]
  4. VENLAFAXINE HYDROCHLORIDE [Concomitant]

REACTIONS (3)
  - Ulnar nerve palsy [Not Recovered/Not Resolved]
  - Device dislocation [Unknown]
  - Hypoaesthesia [Not Recovered/Not Resolved]
